FAERS Safety Report 6814853 (Version 1)
Quarter: 2020Q3

REPORT INFORMATION
  Report Type: Spontaneous
  Country: CH (occurrence: CH)
  Receive Date: 20081118
  Receipt Date: 20081118
  Transmission Date: 20201105
  Serious: Yes (Other)
  Sender: FDA-Public Use
  Company Number: CH-ROCHE-595586

PATIENT
  Age: 52 Year
  Sex: Female

DRUGS (5)
  1. ZOMETA [Suspect]
     Active Substance: ZOLEDRONIC ACID
     Indication: BREAST CANCER METASTATIC
     Dosage: FORM: INFUSION AMPULES. DRUG NAME: ZOMETA 4 MG/5ML
     Route: 041
     Dates: start: 200610, end: 20080408
  2. LITHIUM. [Concomitant]
     Active Substance: LITHIUM
     Route: 048
     Dates: start: 20050101
  3. FEMARA [Concomitant]
     Active Substance: LETROZOLE
     Route: 048
     Dates: start: 20010911
  4. IBANDRONIC ACID. [Suspect]
     Active Substance: IBANDRONIC ACID
     Indication: BREAST CANCER METASTATIC
     Route: 048
     Dates: start: 200503, end: 200610
  5. FLUPENTIXOL [Concomitant]
     Active Substance: FLUPENTIXOL
     Route: 048
     Dates: start: 199510

REACTIONS (1)
  - Osteonecrosis [Not Recovered/Not Resolved]

NARRATIVE: CASE EVENT DATE: 20070901
